FAERS Safety Report 8299354-8 (Version None)
Quarter: 2012Q2

REPORT INFORMATION
  Report Type: 
  Country: None (occurrence: None)
  Receive Date: 20120419
  Receipt Date: 20120416
  Transmission Date: 20120825
  Serious: No
  Sender: FDA-Public Use
  Company Number: US-PFIZER INC-2012085195

PATIENT
  Sex: Male
  Weight: 150 kg

DRUGS (4)
  1. LISINOPRIL [Concomitant]
     Dosage: 40 MG, UNK
  2. HYDROCHLOROTHIAZIDE [Concomitant]
     Dosage: 25 MG, UNK
  3. GENOTROPIN [Suspect]
     Dosage: 12 MG, 0.8 MG DAILY
     Route: 058
  4. MULTI-VITAMINS [Concomitant]

REACTIONS (1)
  - NO ADVERSE EVENT [None]
